FAERS Safety Report 8923709 (Version 1)
Quarter: 2012Q4

REPORT INFORMATION
  Report Type: Spontaneous
  Country: FR (occurrence: None)
  Receive Date: 20121115
  Receipt Date: 20121115
  Transmission Date: 20130627
  Serious: Yes (Other)
  Sender: FDA-Public Use
  Company Number: FK201203378

PATIENT

DRUGS (1)
  1. PIPERACILLIN/TAZOBACTAM [Suspect]
     Indication: PRODUCT USED FOR UNKNOWN INDICATION

REACTIONS (5)
  - Autonomic neuropathy [None]
  - Cholestasis [None]
  - Toxicity to various agents [None]
  - Drug hypersensitivity [None]
  - Drug interaction [None]
